FAERS Safety Report 9253294 (Version 2)
Quarter: 2013Q2

REPORT INFORMATION
  Report Type: Report from Study
  Country: CA (occurrence: CA)
  Receive Date: 20130424
  Receipt Date: 20130530
  Transmission Date: 20140414
  Serious: Yes (Hospitalization)
  Sender: FDA-Public Use
  Company Number: CA-ABBOTT-13P-028-1078670-00

PATIENT
  Age: 40 Year
  Sex: Male
  Weight: 68.1 kg

DRUGS (1)
  1. HUMIRA [Suspect]
     Indication: CROHN^S DISEASE
     Route: 058
     Dates: start: 20121022

REACTIONS (6)
  - Intestinal obstruction [Not Recovered/Not Resolved]
  - Abdominal pain [Unknown]
  - Nausea [Unknown]
  - Vomiting [Unknown]
  - Enterocutaneous fistula [Unknown]
  - Gastrointestinal stoma complication [Unknown]
